FAERS Safety Report 6272334-X (Version None)
Quarter: 2009Q3

REPORT INFORMATION
  Report Type: 
  Country: None (occurrence: None)
  Receive Date: 20090717
  Receipt Date: 20090713
  Transmission Date: 20100115
  Serious: Yes (Hospitalization)
  Sender: FDA-Public Use
  Company Number: AR-ROCHE-629162

PATIENT
  Sex: Female
  Weight: 49.8 kg

DRUGS (36)
  1. MYCOPHENOLATE MOFETIL [Suspect]
     Indication: LUPUS NEPHRITIS
     Route: 048
     Dates: start: 20081119, end: 20081125
  2. MYCOPHENOLATE MOFETIL [Suspect]
     Route: 048
     Dates: start: 20081126, end: 20081202
  3. MYCOPHENOLATE MOFETIL [Suspect]
     Dosage: DATE OF LAST DOSE PRIOR TO SAE: 20 APRIL 2009
     Route: 048
     Dates: start: 20081203, end: 20090422
  4. MYCOPHENOLATE MOFETIL [Suspect]
     Route: 048
     Dates: start: 20090423, end: 20090430
  5. OCRELIZUMAB [Suspect]
     Indication: LUPUS NEPHRITIS
     Dosage: LAST DOSE PRIOR TO SAE: 11 MARCH 2009 FREQUENCY: DAY 1- 15 TEMPORARILY STOPPED
     Route: 042
     Dates: start: 20081119, end: 20090701
  6. PREDNISONE [Suspect]
     Indication: LUPUS NEPHRITIS
     Dosage: DATE OF LAST DOSE PRIOR TO SAE: 02 DEC 2008
     Route: 048
     Dates: start: 20081121
  7. PREDNISONE [Suspect]
     Dosage: DATE OF LAST DOSE PRIOR TO SAE: 17 DEC 2008
     Route: 048
     Dates: start: 20081204
  8. PREDNISONE [Suspect]
     Dosage: DATE OF LAST DOSE PRIOR TO SAE: 12 JAN 2009
     Route: 048
     Dates: start: 20081218
  9. PREDNISONE [Suspect]
     Dosage: DATE OF LAST DOSE PRIOR TO SAE: 4 FEB 2009
     Route: 048
     Dates: start: 20090113
  10. PREDNISONE [Suspect]
     Dosage: DATE OF LAST DOSE PRIOR TO SAE: 18 FEB 2009
     Route: 048
     Dates: start: 20090205
  11. PREDNISONE [Suspect]
     Dosage: DATE OF LAST DOSE PRIOR TO SAE: 25 FEB 2009
     Route: 048
     Dates: start: 20090219
  12. PREDNISONE [Suspect]
     Dosage: DATE OF LAST DOSE PRIOR TO SAE: 04 MAR 2009
     Route: 048
     Dates: start: 20090226
  13. PREDNISONE [Suspect]
     Dosage: DDATE OF LAST DOSE PRIOR TO SAE: 10 MARCH 2009
     Route: 048
     Dates: start: 20090305
  14. PREDNISONE [Suspect]
     Dosage: DATE OF LAST DOSE PRIOR TO SAE: 12 MAR 2009
     Route: 048
     Dates: start: 20090312
  15. PREDNISONE [Suspect]
     Dosage: DATE OF LAST DOSE PRIOR TO SAE: 25 MAR 2009
     Route: 048
     Dates: start: 20090318
  16. PREDNISONE [Suspect]
     Dosage: DATE OF LAST DOSE PRIOR TO SAE: 08 APRIL 2009
     Route: 048
     Dates: start: 20090326
  17. PREDNISONE [Suspect]
     Dosage: DATE OF LAST DOSE PRIOR TO SAE: 15 APR 2009
     Route: 048
     Dates: start: 20090409
  18. PREDNISONE [Suspect]
     Dosage: DATE OF LAST DOSE PRIOR TO SAE: 20 APRIL 2009
     Route: 048
     Dates: start: 20090416, end: 20090422
  19. PREDNISONE [Suspect]
     Route: 048
     Dates: start: 20090425, end: 20090429
  20. PREDNISONE [Suspect]
     Route: 048
     Dates: start: 20090430
  21. PREDNISONE [Suspect]
     Route: 048
     Dates: start: 20090505
  22. PREDNISONE [Suspect]
     Route: 048
     Dates: start: 20090514
  23. PREDNISONE [Suspect]
     Route: 048
     Dates: start: 20090526
  24. METHYLPREDNISOLONE [Suspect]
     Indication: LUPUS NEPHRITIS
     Dosage: FREQUENCY: SINGLE DOSE (SD)
     Route: 042
     Dates: start: 20081119, end: 20081119
  25. METHYLPREDNISOLONE [Suspect]
     Dosage: FREQUENCY: SINGLE DOSE (SD)
     Route: 042
     Dates: start: 20081120, end: 20081120
  26. METHYLPREDNISOLONE [Suspect]
     Route: 042
     Dates: start: 20081203, end: 20081203
  27. METHYLPREDNISOLONE [Suspect]
     Route: 042
     Dates: start: 20090422, end: 20090424
  28. LANSOPRAZOLE [Concomitant]
     Dates: start: 20081110, end: 20090422
  29. LANSOPRAZOLE [Concomitant]
     Dates: start: 20090425, end: 20090429
  30. LANSOPRAZOLE [Concomitant]
     Dates: start: 20090602
  31. ASPIRIN [Concomitant]
     Dates: start: 20081112, end: 20090420
  32. ASPIRIN [Concomitant]
     Dates: start: 20090421
  33. CALCIUM CITRATE [Concomitant]
     Dates: start: 20081112
  34. VITAMIN D3 [Concomitant]
     Dosage: TOTAL DAILY DOSE: 400 UI
     Dates: start: 20081112
  35. DIPIRON [Concomitant]
     Dosage: TDD REPORTED AS PRN
     Dates: start: 20090422, end: 20090425
  36. CEFTRIAXONE [Concomitant]
     Dates: start: 20090422, end: 20090424

REACTIONS (1)
  - MENINGITIS CRYPTOCOCCAL [None]
